FAERS Safety Report 8389525 (Version 4)
Quarter: 2015Q1

REPORT INFORMATION
  Report Type: Report from Study
  Country: US (occurrence: US)
  Receive Date: 20120203
  Receipt Date: 20150226
  Transmission Date: 20150721
  Serious: Yes (Death)
  Sender: FDA-Public Use
  Company Number: US-ROCHE-1036219

PATIENT
  Sex: Male

DRUGS (20)
  1. ATROPINE [Concomitant]
     Active Substance: ATROPINE
     Route: 042
  2. BENADRYL [Concomitant]
     Active Substance: DIPHENHYDRAMINE HYDROCHLORIDE
     Route: 042
  3. TEMODAR [Concomitant]
     Active Substance: TEMOZOLOMIDE
     Route: 042
  4. IMMUNOGLOBULIN IV [Concomitant]
     Active Substance: HUMAN IMMUNOGLOBULIN G
     Route: 042
  5. TAGAMET [Concomitant]
     Active Substance: CIMETIDINE
     Route: 042
  6. PROCRIT [Concomitant]
     Active Substance: ERYTHROPOIETIN
     Route: 042
  7. DECADRON [Concomitant]
     Active Substance: DEXAMETHASONE
     Route: 042
  8. AVASTIN [Suspect]
     Active Substance: BEVACIZUMAB
     Route: 042
  9. NAVELBINE [Concomitant]
     Active Substance: VINORELBINE TARTRATE
     Route: 042
  10. PEGFILGRASTIM [Concomitant]
     Active Substance: PEGFILGRASTIM
     Route: 058
  11. ARANESP [Concomitant]
     Active Substance: DARBEPOETIN ALFA
     Route: 042
  12. AVASTIN [Suspect]
     Active Substance: BEVACIZUMAB
     Route: 042
  13. NAVELBINE [Concomitant]
     Active Substance: VINORELBINE TARTRATE
     Route: 042
  14. TAXOL [Concomitant]
     Active Substance: PACLITAXEL
  15. AVASTIN [Suspect]
     Active Substance: BEVACIZUMAB
     Indication: BRAIN NEOPLASM MALIGNANT
     Route: 042
     Dates: start: 20061206
  16. ALOXI [Concomitant]
     Active Substance: PALONOSETRON HYDROCHLORIDE
     Route: 042
  17. ANZEMET [Concomitant]
     Active Substance: DOLASETRON MESYLATE
     Route: 042
  18. ETOPOSIDE. [Concomitant]
     Active Substance: ETOPOSIDE
     Route: 065
  19. METHOTREXATE [Concomitant]
     Active Substance: METHOTREXATE
     Route: 042
  20. CAMPTOTHECIN [Concomitant]
     Active Substance: CAMPTOTHECIN
     Route: 042

REACTIONS (2)
  - Off label use [Unknown]
  - Glioblastoma multiforme [Fatal]
